FAERS Safety Report 21345708 (Version 1)
Quarter: 2022Q3

REPORT INFORMATION
  Report Type: Report from Study
  Country: US (occurrence: None)
  Receive Date: 20220916
  Receipt Date: 20220916
  Transmission Date: 20221027
  Serious: Yes (Other)
  Sender: FDA-Public Use
  Company Number: 2020SE98145

PATIENT
  Sex: Male
  Weight: 83.5 kg

DRUGS (4)
  1. KOSELUGO [Suspect]
     Active Substance: SELUMETINIB
     Indication: Neurofibromatosis
     Dosage: 50.0MG UNKNOWN
     Route: 048
     Dates: start: 20200518, end: 20200721
  2. BRIMONIDINE TARTRATE [Concomitant]
     Active Substance: BRIMONIDINE TARTRATE
     Dosage: 0.15% UNKNOWN
  3. COSOPT [Concomitant]
     Active Substance: DORZOLAMIDE HYDROCHLORIDE\TIMOLOL MALEATE
  4. XALATAN [Concomitant]
     Active Substance: LATANOPROST
     Dosage: 0.005% UNKNOWN

REACTIONS (1)
  - Blood creatine phosphokinase increased [Unknown]
